FAERS Safety Report 18224809 (Version 1)
Quarter: 2020Q3

REPORT INFORMATION
  Report Type: Other
  Country: US (occurrence: US)
  Receive Date: 20200903
  Receipt Date: 20200903
  Transmission Date: 20201103
  Serious: Yes (Hospitalization, Other)
  Sender: FDA-Public Use
  Company Number: US-INVENTIA-000033

PATIENT
  Age: 23 Year
  Sex: Male

DRUGS (4)
  1. PALIPERIDONE. [Suspect]
     Active Substance: PALIPERIDONE
     Indication: PRODUCT USED FOR UNKNOWN INDICATION
     Dosage: 6 MG DAILY ON DAY 13
     Route: 048
  2. RISPERIDONE. [Suspect]
     Active Substance: RISPERIDONE
     Indication: CONDITION AGGRAVATED
     Dosage: FROM 1 MG ON DAY 1 TO 4 MG BY DAY 8 OF?THE HOSPITALIZATION
     Route: 065
  3. PALIPERIDONE. [Suspect]
     Active Substance: PALIPERIDONE
     Indication: PRODUCT USED FOR UNKNOWN INDICATION
     Dosage: 234 MG ON DAY 16
     Route: 030
  4. RISPERIDONE. [Suspect]
     Active Substance: RISPERIDONE
     Indication: CONDITION AGGRAVATED
     Route: 065

REACTIONS (1)
  - Drug-induced liver injury [Recovered/Resolved]
